FAERS Safety Report 5281289-6 (Version None)
Quarter: 2007Q1

REPORT INFORMATION
  Report Type: 
  Country: None (occurrence: None)
  Receive Date: 20061221
  Receipt Date: 20060829
  Transmission Date: 20070707
  Serious: No
  Sender: FDA-Public Use
  Company Number: SP00964

PATIENT
  Age: 59 Year
  Sex: Female
  Weight: 58.9676 kg

DRUGS (2)
  1. XIFAXAN [Suspect]
     Indication: IRRITABLE BOWEL SYNDROME
     Dosage: 400MG/BID, ORAL
     Route: 048
     Dates: start: 20060826
  2. TIGAN (UNKNOWN) [Concomitant]

REACTIONS (2)
  - ABDOMINAL PAIN [None]
  - DIARRHOEA [None]
